FAERS Safety Report 11073852 (Version 1)
Quarter: 2015Q2

REPORT INFORMATION
  Report Type: Spontaneous
  Country: US (occurrence: US)
  Receive Date: 20150428
  Receipt Date: 20150428
  Transmission Date: 20150821
  Serious: No
  Sender: FDA-Public Use
  Company Number: US-ASTRAZENECA-2014SE63551

PATIENT
  Age: 71 Year
  Sex: Male
  Weight: 111.1 kg

DRUGS (5)
  1. HUMALOG [Concomitant]
     Active Substance: INSULIN LISPRO
     Indication: TYPE 2 DIABETES MELLITUS
  2. BYETTA [Suspect]
     Active Substance: EXENATIDE
     Indication: TYPE 2 DIABETES MELLITUS
     Dosage: 250 MCG / 2.4 ML PEN, TWO TIMES A DAY
     Route: 058
     Dates: start: 2012
  3. LANTUS [Concomitant]
     Active Substance: INSULIN GLARGINE
     Indication: TYPE 2 DIABETES MELLITUS
  4. LIPITOR [Concomitant]
     Active Substance: ATORVASTATIN CALCIUM
  5. VITAMIN [Concomitant]
     Active Substance: VITAMINS

REACTIONS (3)
  - Hyperglycaemia [Not Recovered/Not Resolved]
  - Drug ineffective [Unknown]
  - Diverticulitis [Recovered/Resolved]
